FAERS Safety Report 21228375 (Version 1)
Quarter: 2022Q3

REPORT INFORMATION
  Report Type: Spontaneous
  Country: US (occurrence: None)
  Receive Date: 20220818
  Receipt Date: 20220818
  Transmission Date: 20221027
  Serious: Yes (Life-Threatening, Other)
  Sender: FDA-Public Use
  Company Number: None

PATIENT
  Age: 48 Year
  Sex: Female
  Weight: 90.72 kg

DRUGS (10)
  1. EMGALITY [Suspect]
     Active Substance: GALCANEZUMAB-GNLM
     Indication: Migraine prophylaxis
     Dosage: FREQUENCY : ONCE; INJECTED IN THE THIGH?
     Dates: start: 20220802
  2. lisdexempletine [Concomitant]
  3. sumitriptin [Concomitant]
  4. NAPROXEN [Concomitant]
     Active Substance: NAPROXEN
  5. fluxetine [Concomitant]
  6. CLONAZEPAM [Concomitant]
     Active Substance: CLONAZEPAM
  7. VITAMINS [Concomitant]
     Active Substance: VITAMINS
  8. FISH OIL [Concomitant]
  9. lions mane [Concomitant]
  10. PROBIOTICS NOS [Concomitant]
     Active Substance: PROBIOTICS NOS

REACTIONS (8)
  - Euphoric mood [None]
  - Ataxia [None]
  - Temperature regulation disorder [None]
  - Tremor [None]
  - Paraesthesia [None]
  - Dyspnoea [None]
  - Urinary hesitation [None]
  - Discomfort [None]

NARRATIVE: CASE EVENT DATE: 20220806
